FAERS Safety Report 9897632 (Version 2)
Quarter: 2014Q1

REPORT INFORMATION
  Report Type: Spontaneous
  Country: JP (occurrence: JP)
  Receive Date: 20140214
  Receipt Date: 20140214
  Transmission Date: 20141002
  Serious: Yes (Other)
  Sender: FDA-Public Use
  Company Number: JP-009507513-1402JPN001609

PATIENT
  Age: 35 Year
  Sex: Male

DRUGS (2)
  1. ESLAX INTRAVENOUS 25MG/2.5ML [Suspect]
     Indication: NEUROMUSCULAR BLOCKING THERAPY
     Dosage: UNK
     Route: 042
     Dates: start: 20140116, end: 20140116
  2. BRIDION [Suspect]
     Indication: NEUROMUSCULAR BLOCKING THERAPY
     Dosage: 360 MG, QD
     Route: 042
     Dates: start: 20140116, end: 20140116

REACTIONS (1)
  - Dermatitis allergic [Recovered/Resolved]
